FAERS Safety Report 5910612-1 (Version None)
Quarter: 2008Q4

REPORT INFORMATION
  Report Type: 
  Country: None (occurrence: None)
  Receive Date: 20081007
  Receipt Date: 20080922
  Transmission Date: 20090506
  Serious: Yes (Hospitalization)
  Sender: FDA-Public Use
  Company Number: GB-GENENTECH-266731

PATIENT
  Sex: Female

DRUGS (2)
  1. BEVACIZUMAB [Suspect]
     Indication: BREAST CANCER
     Dosage: 1125 MG, Q3W
     Route: 042
     Dates: start: 20080704
  2. EPIRUBICIN [Suspect]
     Indication: BREAST CANCER
     Dosage: 180 MG, Q3W
     Route: 042
     Dates: start: 20080704

REACTIONS (1)
  - ARTHRALGIA [None]
